FAERS Safety Report 5566527-4 (Version None)
Quarter: 2007Q4

REPORT INFORMATION
  Report Type: 
  Country: None (occurrence: None)
  Receive Date: 20071219
  Receipt Date: 20071214
  Transmission Date: 20080405
  Serious: Yes (Hospitalization)
  Sender: FDA-Public Use
  Company Number: PHNU2007DE04050

PATIENT
  Sex: Female
  Weight: 80 kg

DRUGS (11)
  1. RASILEZ [Suspect]
     Indication: HYPERTENSION
     Dosage: 1 DF, QD
     Dates: start: 20070101
  2. BISOPROLOL [Concomitant]
     Dosage: 1 DF, QD
  3. CARMEN [Concomitant]
     Dosage: 1 DF, QD
  4. TEVETEN HCT [Concomitant]
     Dosage: 1 DF, QD
  5. ACETYLSALICYLIC ACID SRT [Concomitant]
     Dosage: 1 DF, QD
  6. PANTOPRAZOLE SODIUM [Concomitant]
  7. METFORMIN HCL [Concomitant]
     Dosage: 1 DF, BID
  8. NOVONORM [Concomitant]
     Dosage: 1 DF, TID
  9. SIMVASTATIN [Concomitant]
     Dosage: 0.5 DF, QD
  10. METOCLOPRAMIDE HYDROCHLORIDE [Concomitant]
     Dosage: 1 DF, TID
  11. ST. JOHN'S WORT [Concomitant]
     Dosage: 1 DF, QD

REACTIONS (2)
  - DEPRESSED MOOD [None]
  - PSYCHOSOMATIC DISEASE [None]
